FAERS Safety Report 24576247 (Version 1)
Quarter: 2024Q4

REPORT INFORMATION
  Report Type: Report from Study
  Country: GB (occurrence: GB)
  Receive Date: 20241104
  Receipt Date: 20241104
  Transmission Date: 20250115
  Serious: Yes (Death, Hospitalization, Other)
  Sender: GLAXOSMITHKLINE
  Company Number: GB-GLAXOSMITHKLINE INC-GB2024EME135303

PATIENT

DRUGS (1)
  1. MOMELOTINIB [Suspect]
     Active Substance: MOMELOTINIB
     Indication: Myelofibrosis
     Dosage: UNK
     Dates: start: 20240101, end: 20240205

REACTIONS (9)
  - Death [Fatal]
  - Infection [Unknown]
  - Malaise [Unknown]
  - Meningitis [Unknown]
  - Renal impairment [Unknown]
  - Diabetes mellitus [Unknown]
  - Cognitive disorder [Unknown]
  - Hypertension [Unknown]
  - Ill-defined disorder [Unknown]
